FAERS Safety Report 9133148 (Version 4)
Quarter: 2013Q2

REPORT INFORMATION
  Report Type: Report from Study
  Country: US (occurrence: US)
  Receive Date: 20130301
  Receipt Date: 20130612
  Transmission Date: 20140414
  Serious: Yes (Hospitalization)
  Sender: FDA-Public Use
  Company Number: US-BAXTER-2013BAX006931

PATIENT
  Age: 79 Year
  Sex: Female
  Weight: 68.8 kg

DRUGS (11)
  1. MEMANTINE [Concomitant]
     Indication: DEMENTIA ALZHEIMER^S TYPE
     Route: 048
     Dates: start: 201204
  2. FLUTICASONE [Concomitant]
     Indication: UPPER-AIRWAY COUGH SYNDROME
     Dosage: 2 SPRAYS
     Route: 045
     Dates: start: 201211
  3. ASA [Concomitant]
     Indication: CORONARY ARTERY DISEASE
     Route: 048
     Dates: start: 2008
  4. CITALOPRAM [Concomitant]
     Indication: DEPRESSION
     Route: 048
     Dates: start: 201204
  5. SARCHAROMYCES BOULARDIL [Concomitant]
     Indication: CONSTIPATION
     Route: 048
     Dates: start: 2012
  6. CALCIUM CARBONATE [Concomitant]
     Indication: OSTEOPOROSIS
     Dosage: 600/500MG
     Route: 048
     Dates: start: 201109
  7. VIT D3 CHOLECALCIFEROL [Concomitant]
     Indication: OSTEOPOROSIS
     Route: 048
     Dates: start: 201109
  8. TOPROL [Concomitant]
     Indication: CORONARY ARTERY DISEASE
     Route: 048
     Dates: start: 2008
  9. LEVOTHYROXINE [Concomitant]
     Indication: HYPOTHYROIDISM
     Route: 048
     Dates: start: 2008
  10. GAMMAGARD LIQUID [Suspect]
     Indication: DEMENTIA ALZHEIMER^S TYPE
     Route: 042
     Dates: start: 20130228, end: 20130228
  11. GAMMAGARD LIQUID [Suspect]
     Route: 042
     Dates: start: 20130214, end: 20130214

REACTIONS (6)
  - Hemiparesis [Recovered/Resolved]
  - Urinary tract infection [Recovered/Resolved]
  - Mental status changes [Recovered/Resolved]
  - Headache [Recovered/Resolved]
  - Encephalopathy [Recovered/Resolved]
  - Urinary tract infection [Recovered/Resolved]
